FAERS Safety Report 9144903 (Version 1)
Quarter: 2013Q1

REPORT INFORMATION
  Report Type: Spontaneous
  Country: US (occurrence: US)
  Receive Date: 20130307
  Receipt Date: 20130307
  Transmission Date: 20140127
  Serious: No
  Sender: FDA-Public Use
  Company Number: US-009507513-1303USA002195

PATIENT
  Sex: 0

DRUGS (1)
  1. DULERA [Suspect]
     Dosage: 1 PUFF TWICE A DAY
     Route: 055
     Dates: start: 20130226

REACTIONS (2)
  - Discomfort [Unknown]
  - Wrong technique in drug usage process [Unknown]
